FAERS Safety Report 16260137 (Version 8)
Quarter: 2019Q4

REPORT INFORMATION
  Report Type: Spontaneous
  Country: US (occurrence: US)
  Receive Date: 20190501
  Receipt Date: 20191016
  Transmission Date: 20200122
  Serious: No
  Sender: FDA-Public Use
  Company Number: US-PFIZER INC-2019182289

PATIENT
  Age: 50 Year
  Sex: Female

DRUGS (1)
  1. XELJANZ XR [Suspect]
     Active Substance: TOFACITINIB CITRATE
     Dosage: 11 MG, UNK

REACTIONS (6)
  - Chest pain [Not Recovered/Not Resolved]
  - Sinus headache [Unknown]
  - Headache [Recovered/Resolved]
  - Swelling [Unknown]
  - Hypertension [Unknown]
  - Discomfort [Unknown]
